FAERS Safety Report 8713026 (Version 3)
Quarter: 2012Q4

REPORT INFORMATION
  Report Type: Report from Study
  Country: CA (occurrence: CA)
  Receive Date: 20120808
  Receipt Date: 20120924
  Transmission Date: 20130627
  Serious: Yes (Hospitalization, Other)
  Sender: FDA-Public Use
  Company Number: CA-EISAI INC-E7389-02582-CLI-CA

PATIENT
  Age: 71 Year
  Sex: Female
  Weight: 93 kg

DRUGS (6)
  1. E7389 (BOLD) [Suspect]
     Indication: METASTATIC BREAST CANCER
     Dosage: UNKNOWN
     Route: 041
     Dates: start: 20120530, end: 20120606
  2. COLCHICINE [Suspect]
     Indication: GOUT
     Dosage: UNKNOWN
     Dates: start: 20120518
  3. AMLODIPINE [Concomitant]
     Indication: HYPERTENSION
  4. EZETIMIBE [Concomitant]
     Indication: DYSLIPIDEMIA
  5. VENLAFAXINE [Concomitant]
     Indication: DEPRESSION
  6. HYDROXYCHLOROQUINE [Concomitant]
     Indication: RHEUMATOID ARTHRITIS

REACTIONS (4)
  - Left ventricular dysfunction [Recovered/Resolved with Sequelae]
  - Pneumonia [Recovered/Resolved]
  - Neutropenia [Recovered/Resolved]
  - Anaemia [Recovered/Resolved]
